FAERS Safety Report 5366282-7 (Version None)
Quarter: 2007Q2

REPORT INFORMATION
  Report Type: 
  Country: None (occurrence: None)
  Receive Date: 20070619
  Receipt Date: 20070619
  Transmission Date: 20071010
  Serious: Yes (Hospitalization)
  Sender: FDA-Public Use
  Company Number: None

PATIENT
  Sex: Male
  Weight: 75.7507 kg

DRUGS (11)
  1. REVLIMID [Suspect]
     Indication: MULTIPLE MYELOMA
     Dosage: 20MG DAILY 21D/28D PO
     Route: 048
  2. DEXAMETHASONE 0.5MG TAB [Concomitant]
  3. METOPROLOL SUCCINATE [Concomitant]
  4. ATROVENT [Concomitant]
  5. IBUPROFEN [Concomitant]
  6. ALBUTEROL [Concomitant]
  7. GLIPIZIDE [Concomitant]
  8. HYTRIN [Concomitant]
  9. ISORDIL [Concomitant]
  10. ASPIRIN [Concomitant]
  11. OMEGA 3 [Concomitant]

REACTIONS (1)
  - CHEST DISCOMFORT [None]
